FAERS Safety Report 25390407 (Version 1)
Quarter: 2025Q2

REPORT INFORMATION
  Report Type: Spontaneous
  Country: US (occurrence: None)
  Receive Date: 20250603
  Receipt Date: 20250603
  Transmission Date: 20250717
  Serious: Yes (Hospitalization)
  Sender: FDA-CTU
  Company Number: None

PATIENT
  Age: 57 Year
  Sex: Female
  Weight: 92.5 kg

DRUGS (7)
  1. CYCLOPHOSPHAMIDE [Suspect]
     Active Substance: CYCLOPHOSPHAMIDE
     Dates: end: 20250413
  2. CYTARABINE [Suspect]
     Active Substance: CYTARABINE
     Dates: end: 20250504
  3. DOXORUBICIN HYDROCHLORIDE [Suspect]
     Active Substance: DOXORUBICIN HYDROCHLORIDE
     Dates: end: 20250413
  4. METHOTREXATE [Suspect]
     Active Substance: METHOTREXATE
     Dates: end: 20250505
  5. PONATINIB [Suspect]
     Active Substance: PONATINIB
     Dates: end: 20250602
  6. PREDNISONE [Suspect]
     Active Substance: PREDNISONE
     Dates: end: 20250410
  7. VINCRISTINE SULFATE [Suspect]
     Active Substance: VINCRISTINE SULFATE
     Dates: end: 20250418

REACTIONS (2)
  - Asthenia [None]
  - Wheelchair user [None]

NARRATIVE: CASE EVENT DATE: 20250528
